FAERS Safety Report 4973996-7 (Version None)
Quarter: 2006Q2

REPORT INFORMATION
  Report Type: 
  Country: None (occurrence: None)
  Receive Date: 20060417
  Receipt Date: 20050901
  Transmission Date: 20061013
  Serious: Yes (Disabling)
  Sender: FDA-Public Use
  Company Number: US-BRISTOL-MYERS SQUIBB COMPANY-13097506

PATIENT
  Age: 72 Year
  Sex: Female
  Weight: 104 kg

DRUGS (4)
  1. AVAPRO [Suspect]
     Indication: HYPERTENSION
     Dates: start: 20050201, end: 20050830
  2. LIPITOR [Concomitant]
  3. ZIAC [Concomitant]
  4. HYDROCHLOROTHIAZIDE [Concomitant]

REACTIONS (8)
  - COUGH [None]
  - DIZZINESS [None]
  - DYSPEPSIA [None]
  - DYSPNOEA EXERTIONAL [None]
  - FATIGUE [None]
  - HEART RATE ABNORMAL [None]
  - OEDEMA PERIPHERAL [None]
  - RHINORRHOEA [None]
